FAERS Safety Report 8613560-1 (Version None)
Quarter: 2012Q3

REPORT INFORMATION
  Report Type: 
  Country: None (occurrence: None)
  Receive Date: 20120823
  Receipt Date: 20120808
  Transmission Date: 20120928
  Serious: Yes (Hospitalization, Other)
  Sender: FDA-Public Use
  Company Number: US-009507513-1110USA00447

PATIENT

DRUGS (18)
  1. MEDROL [Concomitant]
  2. ATREXEL [Concomitant]
     Dosage: 17.5 MG, QW
     Dates: start: 20000101
  3. CLINORIL [Concomitant]
  4. CORTISONE ACETATE [Concomitant]
  5. GERITOL COMPLETE [Concomitant]
     Dosage: UNK, QD
     Dates: start: 20030101
  6. ASPIRIN [Concomitant]
     Indication: PROPHYLAXIS
     Dosage: 81 MG, QD
     Dates: start: 20030101
  7. SULINDAC [Concomitant]
     Dosage: 200 MG, UNK
  8. PLAQUENIL [Concomitant]
  9. REMICADE [Concomitant]
     Route: 041
     Dates: start: 20010101, end: 20060301
  10. DISALCID [Concomitant]
  11. SALSALATE [Concomitant]
  12. TRILISATE [Concomitant]
  13. FOSAMAX [Suspect]
     Dosage: 70 MG, QW
     Route: 048
  14. FOSAMAX [Suspect]
     Indication: OSTEOPOROSIS
     Dosage: 70 MG, QW
     Route: 048
     Dates: start: 19970101, end: 20090101
  15. MK-9039 [Concomitant]
  16. CALCIUM (UNSPECIFIED) [Concomitant]
  17. METICORTEN [Concomitant]
     Dosage: 15 MG, QD
  18. CELEBREX [Concomitant]
     Dosage: UNK UNK, PRN

REACTIONS (61)
  - NEPHROLITHIASIS [None]
  - SKIN ATROPHY [None]
  - MUSCLE ATROPHY [None]
  - PNEUMONIA [None]
  - CHEST PAIN [None]
  - ESSENTIAL HYPERTENSION [None]
  - OEDEMA PERIPHERAL [None]
  - OSTEOARTHRITIS [None]
  - ALTERED STATE OF CONSCIOUSNESS [None]
  - ANAEMIA POSTOPERATIVE [None]
  - RIB FRACTURE [None]
  - IMPAIRED HEALING [None]
  - OSTEOPENIA [None]
  - PULMONARY GRANULOMA [None]
  - PRODUCTIVE COUGH [None]
  - TOOTH DISORDER [None]
  - PLEURAL EFFUSION [None]
  - CARDIAC DISORDER [None]
  - CHRONIC OBSTRUCTIVE PULMONARY DISEASE [None]
  - ASTHMA [None]
  - ECCHYMOSIS [None]
  - GASTROOESOPHAGEAL REFLUX DISEASE [None]
  - LUMBAR SPINAL STENOSIS [None]
  - SEXUAL RELATIONSHIP CHANGE [None]
  - PROSTATE CANCER [None]
  - BRONCHOPNEUMONIA [None]
  - ASTHENIA [None]
  - FATIGUE [None]
  - CORONARY ARTERY DISEASE [None]
  - BRONCHITIS [None]
  - SCOLIOSIS [None]
  - DIARRHOEA [None]
  - PAIN [None]
  - MULTIPLE FRACTURES [None]
  - ADVERSE EVENT [None]
  - EMPHYSEMA [None]
  - FALL [None]
  - INTERVERTEBRAL DISC PROTRUSION [None]
  - HAEMORRHOIDS [None]
  - LOBAR PNEUMONIA [None]
  - TACHYCARDIA [None]
  - CONSTIPATION [None]
  - PULMONARY FIBROSIS [None]
  - RHINORRHOEA [None]
  - PULMONARY CAVITATION [None]
  - ADJUSTMENT DISORDER [None]
  - DRUG INEFFECTIVE [None]
  - SPINAL COMPRESSION FRACTURE [None]
  - HIP FRACTURE [None]
  - SPINAL OSTEOARTHRITIS [None]
  - FEMUR FRACTURE [None]
  - OSTEOPOROSIS [None]
  - LIMB DEFORMITY [None]
  - DECREASED APPETITE [None]
  - STERNAL FRACTURE [None]
  - HAND DEFORMITY [None]
  - NEUROPATHY PERIPHERAL [None]
  - ACUTE MYOCARDIAL INFARCTION [None]
  - POOR QUALITY SLEEP [None]
  - MASS [None]
  - LUNG DISORDER [None]
